FAERS Safety Report 6539548-2 (Version None)
Quarter: 2010Q1

REPORT INFORMATION
  Report Type: 
  Country: None (occurrence: None)
  Receive Date: 20100115
  Receipt Date: 20100108
  Transmission Date: 20100710
  Serious: Yes (Hospitalization)
  Sender: FDA-Public Use
  Company Number: B0624336A

PATIENT
  Sex: Female

DRUGS (2)
  1. MALARONE [Suspect]
     Indication: MALARIA PROPHYLAXIS
     Dosage: 1UNIT PER DAY
     Route: 048
     Dates: start: 20091110, end: 20091125
  2. XALATAN [Concomitant]
     Indication: GLAUCOMA
     Route: 065

REACTIONS (12)
  - CHEILITIS [None]
  - COUGH [None]
  - DIARRHOEA [None]
  - LYMPHADENOPATHY [None]
  - NIKOLSKY'S SIGN [None]
  - OEDEMA MOUTH [None]
  - ORAL MUCOSAL ERUPTION [None]
  - PRURIGO [None]
  - PYREXIA [None]
  - SKIN DISORDER [None]
  - STEVENS-JOHNSON SYNDROME [None]
  - WHITE BLOOD CELL COUNT ABNORMAL [None]
